FAERS Safety Report 13504919 (Version 1)
Quarter: 2017Q2

REPORT INFORMATION
  Report Type: Spontaneous
  Country: US (occurrence: US)
  Receive Date: 20170502
  Receipt Date: 20170502
  Transmission Date: 20170830
  Serious: No
  Sender: FDA-Public Use
  Company Number: US-IMPAX LABORATORIES, INC-2017-IPXL-00598

PATIENT
  Age: 55 Year
  Sex: Female
  Weight: 73 kg

DRUGS (4)
  1. BACLOFEN. [Concomitant]
     Active Substance: BACLOFEN
     Indication: BACK PAIN
     Dosage: 10 MG, UNK
     Route: 065
  2. RYTARY [Suspect]
     Active Substance: CARBIDOPA\LEVODOPA
     Dosage: 48.75/195 MG, 3 CAPSULES AT 5:30AM, THEN 2 AT 8:30AM, 3 AT 12:30PM, AND 2 AT 4:30 PM
     Route: 048
     Dates: start: 201605
  3. ALPRAZOLAM. [Concomitant]
     Active Substance: ALPRAZOLAM
     Indication: ANXIETY
     Dosage: 0.25 MG, UNK
     Route: 065
  4. RYTARY [Suspect]
     Active Substance: CARBIDOPA\LEVODOPA
     Indication: PARKINSON^S DISEASE
     Dosage: 48.75/195MG,  THREE CAPSULES THREE TIMES DAILY
     Route: 048
     Dates: start: 201604, end: 2016

REACTIONS (21)
  - Lymphadenopathy [Unknown]
  - Tinnitus [Unknown]
  - Epistaxis [Not Recovered/Not Resolved]
  - Limb discomfort [Unknown]
  - Back pain [Not Recovered/Not Resolved]
  - Panic attack [Unknown]
  - Headache [Unknown]
  - Abdominal distension [Unknown]
  - Anxiety [Not Recovered/Not Resolved]
  - Musculoskeletal stiffness [Not Recovered/Not Resolved]
  - Pain in extremity [Unknown]
  - Palpitations [Unknown]
  - Feeling hot [Unknown]
  - Dry mouth [Not Recovered/Not Resolved]
  - Productive cough [Unknown]
  - Tremor [Unknown]
  - Vision blurred [Unknown]
  - Hyperhidrosis [Unknown]
  - Pruritus [Unknown]
  - Abasia [Not Recovered/Not Resolved]
  - Drug effect incomplete [Unknown]

NARRATIVE: CASE EVENT DATE: 2016
